FAERS Safety Report 17393464 (Version 1)
Quarter: 2020Q1

REPORT INFORMATION
  Report Type: Spontaneous
  Country: US (occurrence: US)
  Receive Date: 20200208
  Receipt Date: 20200208
  Transmission Date: 20200409
  Serious: No
  Sender: FDA-Public Use
  Company Number: US-TEVA-2020-US-1181339

PATIENT
  Sex: Male

DRUGS (2)
  1. CEPHALEXIN. [Suspect]
     Active Substance: CEPHALEXIN
     Route: 065
  2. PENICILLINS [Suspect]
     Active Substance: PENICILLIN
     Route: 065

REACTIONS (1)
  - Urticaria [Unknown]
